FAERS Safety Report 24454787 (Version 2)
Quarter: 2024Q4

REPORT INFORMATION
  Report Type: Spontaneous
  Country: JP (occurrence: JP)
  Receive Date: 20241017
  Receipt Date: 20241018
  Transmission Date: 20250115
  Serious: No
  Sender: ROCHE
  Company Number: JP-ROCHE-3483042

PATIENT
  Age: 79 Year
  Sex: Female

DRUGS (3)
  1. RITUXAN [Suspect]
     Active Substance: RITUXIMAB
     Indication: Microscopic polyangiitis
     Route: 041
  2. METHYLPREDNISOLONE [Suspect]
     Active Substance: METHYLPREDNISOLONE
     Indication: Microscopic polyangiitis
     Route: 065
  3. AVACOPAN [Suspect]
     Active Substance: AVACOPAN
     Indication: Microscopic polyangiitis
     Route: 065

REACTIONS (6)
  - Infection [Unknown]
  - Bacteraemia [Unknown]
  - Pneumonia bacterial [Unknown]
  - Cytomegalovirus infection reactivation [Unknown]
  - Emphysematous cystitis [Unknown]
  - Pneumonia fungal [Unknown]
